FAERS Safety Report 7811996-X (Version None)
Quarter: 2011Q4

REPORT INFORMATION
  Report Type: 
  Country: None (occurrence: None)
  Receive Date: 20111013
  Receipt Date: 20111006
  Transmission Date: 20120403
  Serious: Yes (Disabling, Other)
  Sender: FDA-Public Use
  Company Number: CZ-ROCHE-709009

PATIENT
  Sex: Female

DRUGS (2)
  1. TAXOL [Concomitant]
  2. AVASTIN [Suspect]
     Indication: BREAST CANCER
     Route: 065
     Dates: start: 20100312, end: 20100609

REACTIONS (2)
  - EJECTION FRACTION DECREASED [None]
  - VENOUS THROMBOSIS [None]
